FAERS Safety Report 23412491 (Version 1)
Quarter: 2024Q1

REPORT INFORMATION
  Report Type: Spontaneous
  Country: US (occurrence: US)
  Receive Date: 20240117
  Receipt Date: 20240117
  Transmission Date: 20240410
  Serious: Yes (Other)
  Sender: FDA-Public Use
  Company Number: US-NOVOPROD-1096823

PATIENT
  Age: 37 Year
  Sex: Female

DRUGS (1)
  1. OZEMPIC [Suspect]
     Active Substance: SEMAGLUTIDE
     Indication: Product used for unknown indication
     Dosage: UNK
     Route: 058
     Dates: start: 2019, end: 2021

REACTIONS (6)
  - Impaired gastric emptying [Recovering/Resolving]
  - Malnutrition [Unknown]
  - Hypophagia [Recovering/Resolving]
  - Stress [Recovering/Resolving]
  - Panic attack [Recovering/Resolving]
  - Dysphagia [Recovering/Resolving]

NARRATIVE: CASE EVENT DATE: 20210101
